FAERS Safety Report 5267696-6 (Version None)
Quarter: 2007Q1

REPORT INFORMATION
  Report Type: 
  Country: None (occurrence: None)
  Receive Date: 20070316
  Receipt Date: 20070306
  Transmission Date: 20070707
  Serious: Yes (Disabling, Other)
  Sender: FDA-Public Use
  Company Number: US-PFIZER INC-2007017663

PATIENT
  Sex: Female

DRUGS (2)
  1. TIKOSYN [Suspect]
     Indication: ATRIAL FIBRILLATION
  2. UNSPECIFIED PAIN MEDICATIONS [Suspect]
     Indication: PAIN

REACTIONS (2)
  - AUTONOMIC FAILURE SYNDROME [None]
  - DYSPHAGIA [None]
